FAERS Safety Report 19350766 (Version 2)
Quarter: 2021Q2

REPORT INFORMATION
  Report Type: Spontaneous
  Country: US (occurrence: US)
  Receive Date: 20210531
  Receipt Date: 20210604
  Transmission Date: 20210717
  Serious: No
  Sender: FDA-Public Use
  Company Number: US-SA-2021SA177382

PATIENT
  Age: 72 Year
  Sex: Female

DRUGS (10)
  1. METFORMIN [Concomitant]
     Active Substance: METFORMIN HYDROCHLORIDE
  2. TRESIBA [Concomitant]
     Active Substance: INSULIN DEGLUDEC
  3. PREDNISONE. [Concomitant]
     Active Substance: PREDNISONE
  4. CLONIDINE. [Concomitant]
     Active Substance: CLONIDINE
  5. DILT [Concomitant]
  6. DUPIXENT [Suspect]
     Active Substance: DUPILUMAB
     Indication: ASTHMA
     Dosage: 600 MG, 1X
     Route: 058
     Dates: start: 20210519, end: 20210519
  7. DUPIXENT [Suspect]
     Active Substance: DUPILUMAB
     Dosage: 300 MG, QOW
     Route: 058
  8. INSULIN [Concomitant]
     Active Substance: INSULIN NOS
  9. LISINOPRIL. [Concomitant]
     Active Substance: LISINOPRIL
  10. MICROLET [ETHINYLESTRADIOL;GESTODENE] [Concomitant]

REACTIONS (2)
  - Product use issue [Unknown]
  - Unevaluable event [Not Recovered/Not Resolved]

NARRATIVE: CASE EVENT DATE: 202105
